FAERS Safety Report 6781880-1 (Version None)
Quarter: 2010Q2

REPORT INFORMATION
  Report Type: 
  Country: None (occurrence: None)
  Receive Date: 20100618
  Receipt Date: 20100618
  Transmission Date: 20101027
  Serious: Yes (Hospitalization)
  Sender: FDA-Public Use
  Company Number: None

PATIENT
  Sex: Female
  Weight: 45.5 kg

DRUGS (4)
  1. GEMCITABINE HCL [Suspect]
     Dosage: 100 MG/M2 DAY 1 OF 21 IV
     Route: 042
     Dates: start: 20100420
  2. GEMCITABINE HCL [Suspect]
     Dosage: 100 MG/M2 DAY 1 OF 21 IV
     Route: 042
     Dates: start: 20100525
  3. GEMCITABINE HCL [Suspect]
     Dosage: 100 MG/M2 DAY 1 OF 21 IV
     Route: 042
     Dates: start: 20100615
  4. ERLOTINIB [Suspect]
     Dosage: 100 MG/M2 DAYS 1-21 PO
     Route: 048
     Dates: start: 20100413, end: 20100615

REACTIONS (8)
  - ABDOMINAL PAIN [None]
  - DYSPNOEA [None]
  - FLATULENCE [None]
  - HYPERPYREXIA [None]
  - NAUSEA [None]
  - SEPSIS [None]
  - TACHYCARDIA [None]
  - VOMITING [None]
